FAERS Safety Report 11885065 (Version 2)
Quarter: 2016Q1

REPORT INFORMATION
  Report Type: Spontaneous
  Country: AT (occurrence: AT)
  Receive Date: 20160104
  Receipt Date: 20160222
  Transmission Date: 20160526
  Serious: Yes (Hospitalization)
  Sender: FDA-Public Use
  Company Number: AT-TEVA-622443ISR

PATIENT
  Sex: Male

DRUGS (6)
  1. OXYCODON RETARD 45 MG [Suspect]
     Active Substance: OXYCODONE HYDROCHLORIDE
     Indication: NEURALGIA
  2. ALPRAZOLAM 1MG [Suspect]
     Active Substance: ALPRAZOLAM
     Indication: NEURALGIA
     Dosage: ONCE IN THE MORNING, ONCE IN NOON, ONCE IN THE EVENING
     Route: 048
  3. OXYCODON RETARD 45 MG [Suspect]
     Active Substance: OXYCODONE HYDROCHLORIDE
     Indication: INTERVERTEBRAL DISC PROTRUSION
  4. ALPRAZOLAM 1MG [Suspect]
     Active Substance: ALPRAZOLAM
     Indication: INTERVERTEBRAL DISC PROTRUSION
  5. PREGABALIN 75MG [Suspect]
     Active Substance: PREGABALIN
     Indication: INTERVERTEBRAL DISC PROTRUSION
  6. PREGABALIN 75MG [Suspect]
     Active Substance: PREGABALIN
     Indication: NEURALGIA
     Dosage: ONCE IN THE MORNING, ONCE IN THE EVENING

REACTIONS (3)
  - Drug abuse [Recovered/Resolved]
  - Drug tolerance increased [Recovered/Resolved]
  - Neuralgia [Recovered/Resolved]
